FAERS Safety Report 5677472-8 (Version None)
Quarter: 2008Q1

REPORT INFORMATION
  Report Type: 
  Country: None (occurrence: None)
  Receive Date: 20080324
  Receipt Date: 20080312
  Transmission Date: 20080703
  Serious: Yes (Other)
  Sender: FDA-Public Use
  Company Number: BR-PFIZER INC-2008023885

PATIENT
  Age: 90 Year
  Sex: Female

DRUGS (1)
  1. NEURONTIN [Suspect]
     Indication: POLYNEUROPATHY

REACTIONS (6)
  - ALOPECIA [None]
  - ARTHRALGIA [None]
  - JOINT SWELLING [None]
  - KERATITIS [None]
  - MULTIPLE ALLERGIES [None]
  - OEDEMA PERIPHERAL [None]
